FAERS Safety Report 5808184-5 (Version None)
Quarter: 2008Q3

REPORT INFORMATION
  Report Type: 
  Country: None (occurrence: None)
  Receive Date: 20080709
  Receipt Date: 20080623
  Transmission Date: 20090109
  Serious: Yes (Other)
  Sender: FDA-Public Use
  Company Number: 2008016499

PATIENT
  Sex: Female

DRUGS (1)
  1. LISTERINE SMART RINSE MINT SHIELD (SODIUM FLUORIDE) [Suspect]
     Indication: DENTAL DISORDER PROPHYLAXIS
     Dosage: 2 CAPFULS 2X PER DAY, ORAL
     Route: 048
     Dates: start: 20080622, end: 20080622

REACTIONS (1)
  - CONVULSION [None]
